FAERS Safety Report 5512274-4 (Version None)
Quarter: 2007Q4

REPORT INFORMATION
  Report Type: 
  Country: None (occurrence: None)
  Receive Date: 20071112
  Receipt Date: 20070905
  Transmission Date: 20080405
  Serious: No
  Sender: FDA-Public Use
  Company Number: A0678867A

PATIENT
  Age: 32 Year
  Sex: Male

DRUGS (2)
  1. VERAMYST [Suspect]
     Route: 045
     Dates: start: 20070822, end: 20070825
  2. ALLEGRA [Concomitant]

REACTIONS (4)
  - EAR PAIN [None]
  - EPISTAXIS [None]
  - NASAL CONGESTION [None]
  - PHARYNGOLARYNGEAL PAIN [None]
